FAERS Safety Report 5011865-7 (Version None)
Quarter: 2006Q2

REPORT INFORMATION
  Report Type: 
  Country: None (occurrence: None)
  Receive Date: 20060526
  Receipt Date: 20060518
  Transmission Date: 20061013
  Serious: Yes (Life-Threatening)
  Sender: FDA-Public Use
  Company Number: FR-AVENTIS-200611905FR

PATIENT
  Age: 71 Year
  Sex: Female

DRUGS (7)
  1. AMARYL [Suspect]
     Indication: DRUG USE FOR UNKNOWN INDICATION
     Dosage: DOSE UNIT: UNITS
     Route: 048
     Dates: end: 20060315
  2. DI-ANTALVIC [Suspect]
     Indication: PAIN
     Route: 048
     Dates: end: 20060315
  3. PARIET [Concomitant]
  4. METFORMIN [Concomitant]
     Dosage: DOSE UNIT: UNITS
     Route: 048
  5. STABLON [Concomitant]
     Dosage: DOSE UNIT: UNITS
     Route: 048
  6. TRIATEC [Concomitant]
     Dosage: DOSE UNIT: UNITS
     Route: 048
  7. LYPANTHYL 160 [Concomitant]
     Route: 048

REACTIONS (1)
  - HYPOGLYCAEMIC COMA [None]
